FAERS Safety Report 7824843-7 (Version None)
Quarter: 2011Q4

REPORT INFORMATION
  Report Type: 
  Country: None (occurrence: None)
  Receive Date: 20111019
  Receipt Date: 20110322
  Transmission Date: 20120403
  Serious: Yes (Other)
  Sender: FDA-Public Use
  Company Number: US-BRISTOL-MYERS SQUIBB COMPANY-15545551

PATIENT
  Age: 69 Year
  Sex: Female
  Weight: 79 kg

DRUGS (5)
  1. VALIUM [Concomitant]
  2. AVALIDE [Suspect]
     Indication: HYPERTENSION
     Dosage: 1 DF: 300/25 UNIT NOS TAKEN AS CONMED APPROX 1 MONTH AGO
  3. NORVASC [Concomitant]
     Dosage: 1DF=10MG IN AM WITH AVALIDE,HALF A NORVASC IN THE AFTERNOON
  4. VITAMIN TAB [Concomitant]
  5. XIFAXAN [Concomitant]

REACTIONS (3)
  - ARRHYTHMIA [None]
  - DYSPNOEA [None]
  - HYPERTENSION [None]
